FAERS Safety Report 20393410 (Version 1)
Quarter: 2022Q1

REPORT INFORMATION
  Report Type: Report from Study
  Country: US (occurrence: US)
  Receive Date: 20220128
  Receipt Date: 20220128
  Transmission Date: 20220423
  Serious: Yes (Life-Threatening, Other)
  Sender: FDA-Public Use
  Company Number: US-SHIRE-US201920983

PATIENT
  Age: 44 Year
  Sex: Female
  Weight: 42 kg

DRUGS (9)
  1. TEDUGLUTIDE [Suspect]
     Active Substance: TEDUGLUTIDE
     Indication: Short-bowel syndrome
     Dosage: 5.0 MILLIGRAM (0.2 ML), 0.05 MG/KG, 7 DOSES PER WEEK, 1X/DAY:QD
     Route: 058
     Dates: start: 201501, end: 20190412
  2. TEDUGLUTIDE [Suspect]
     Active Substance: TEDUGLUTIDE
     Indication: Short-bowel syndrome
     Dosage: 5.0 MILLIGRAM (0.2 ML), 0.05 MG/KG, 7 DOSES PER WEEK, 1X/DAY:QD
     Route: 058
     Dates: start: 201501, end: 20190412
  3. TEDUGLUTIDE [Suspect]
     Active Substance: TEDUGLUTIDE
     Indication: Short-bowel syndrome
     Dosage: 5.0 MILLIGRAM (0.2 ML), 0.05 MG/KG, 7 DOSES PER WEEK, 1X/DAY:QD
     Route: 058
     Dates: start: 201501, end: 20190412
  4. TEDUGLUTIDE [Suspect]
     Active Substance: TEDUGLUTIDE
     Indication: Short-bowel syndrome
     Dosage: 5.0 MILLIGRAM (0.2 ML), 0.05 MG/KG, 7 DOSES PER WEEK, 1X/DAY:QD
     Route: 058
     Dates: start: 201501, end: 20190412
  5. SODIUM CHLORIDE [Concomitant]
     Active Substance: SODIUM CHLORIDE
     Indication: Electrolyte imbalance
     Dosage: 500 MILLILITER, SINGLE
     Route: 042
     Dates: start: 20190306, end: 20190306
  6. POTASSIUM CHLORIDE [Concomitant]
     Active Substance: POTASSIUM CHLORIDE
     Indication: Electrolyte imbalance
     Dosage: 20, UNK, SINGLE
     Route: 042
     Dates: start: 20190306, end: 20190306
  7. MAGNESIUM SULFATE [Concomitant]
     Active Substance: MAGNESIUM SULFATE
     Indication: Electrolyte imbalance
     Dosage: 2 GRAM, SINGLE
     Route: 042
     Dates: start: 20190306, end: 20190306
  8. KETOROLAC [Concomitant]
     Active Substance: KETOROLAC TROMETHAMINE
     Indication: Electrolyte imbalance
     Dosage: 30 MILLIGRAM, SINGLE
     Route: 042
     Dates: start: 20190306, end: 20190306
  9. ONDANSETRON [Concomitant]
     Active Substance: ONDANSETRON
     Indication: Nausea

REACTIONS (1)
  - Chronic myeloid leukaemia [Not Recovered/Not Resolved]

NARRATIVE: CASE EVENT DATE: 20190322
